FAERS Safety Report 7036366-6 (Version None)
Quarter: 2010Q4

REPORT INFORMATION
  Report Type: 
  Country: None (occurrence: None)
  Receive Date: 20101008
  Receipt Date: 20101005
  Transmission Date: 20110411
  Serious: Yes (Other)
  Sender: FDA-Public Use
  Company Number: GB-MERCK-1009GBR00111

PATIENT
  Sex: Female

DRUGS (13)
  1. FOSAMAX [Suspect]
     Route: 048
     Dates: start: 20100902, end: 20100916
  2. FOSAMAX [Suspect]
     Route: 048
  3. ASPIRIN [Concomitant]
     Indication: ESSENTIAL HYPERTENSION
     Route: 048
  4. BUDESONIDE [Concomitant]
     Indication: ASTHMA
     Route: 055
  5. CHOLECALCIFEROL [Concomitant]
     Indication: OSTEOPOROSIS
     Route: 048
  6. LANOLIN AND MINERAL OIL AND PETROLATUM [Concomitant]
     Indication: SKIN DISORDER
     Route: 065
  7. FORMOTEROL FUMARATE [Concomitant]
     Indication: ASTHMA
     Route: 055
  8. PSYLLIUM HUSK [Concomitant]
     Indication: ABDOMINAL PAIN LOWER
     Route: 048
  9. LATANOPROST [Concomitant]
     Indication: GLAUCOMA
     Route: 065
  10. LERCANIDIPINE [Concomitant]
     Indication: ESSENTIAL HYPERTENSION
     Route: 048
  11. RISEDRONATE SODIUM [Concomitant]
     Indication: OSTEOPOROSIS
     Route: 048
  12. CALCITRIOL [Concomitant]
     Indication: OSTEOPOROSIS
     Route: 048
  13. ALBUTEROL [Concomitant]
     Indication: ASTHMA
     Route: 055

REACTIONS (2)
  - DYSPHONIA [None]
  - PALPITATIONS [None]
